FAERS Safety Report 7586615-0 (Version None)
Quarter: 2011Q3

REPORT INFORMATION
  Report Type: 
  Country: None (occurrence: None)
  Receive Date: 20110701
  Receipt Date: 20110621
  Transmission Date: 20111222
  Serious: Yes (Hospitalization, Other)
  Sender: FDA-Public Use
  Company Number: SK-AMGEN-SVKSP2011031475

PATIENT
  Sex: Female

DRUGS (2)
  1. CORTICOSTEROIDS [Concomitant]
     Route: 055
  2. PROLIA [Suspect]
     Indication: OSTEOPOROSIS POSTMENOPAUSAL
     Dosage: 60 MG, Q6MO
     Dates: start: 20110615

REACTIONS (5)
  - LUNG DISORDER [None]
  - HAEMATURIA [None]
  - PYREXIA [None]
  - LIVER FUNCTION TEST ABNORMAL [None]
  - CHILLS [None]
